FAERS Safety Report 9558474 (Version 3)
Quarter: 2014Q1

REPORT INFORMATION
  Report Type: Spontaneous
  Country: US (occurrence: US)
  Receive Date: 20130926
  Receipt Date: 20140128
  Transmission Date: 20141002
  Serious: No
  Sender: FDA-Public Use
  Company Number: US-BIOGENIDEC-2013BI043932

PATIENT
  Age: 56 Year
  Sex: Female

DRUGS (8)
  1. TECFIDERA [Suspect]
     Indication: PRODUCT USED FOR UNKNOWN INDICATION
     Route: 048
     Dates: start: 20130509, end: 20130515
  2. TECFIDERA [Suspect]
     Indication: PRODUCT USED FOR UNKNOWN INDICATION
     Route: 048
     Dates: start: 20130516
  3. ACTONEL [Concomitant]
  4. BACLOFEN [Concomitant]
  5. FLOMAX [Concomitant]
  6. ZANAFLEX [Concomitant]
  7. SYNTHROID [Concomitant]
  8. LISINOPRIL [Concomitant]

REACTIONS (4)
  - Erythema [Recovered/Resolved]
  - Feeling hot [Recovered/Resolved]
  - Haemorrhoids [Not Recovered/Not Resolved]
  - Flushing [Not Recovered/Not Resolved]
